FAERS Safety Report 4558459-5 (Version None)
Quarter: 2005Q1

REPORT INFORMATION
  Report Type: 
  Country: None (occurrence: None)
  Receive Date: 20050119
  Receipt Date: 20041217
  Transmission Date: 20050727
  Serious: Yes (Hospitalization)
  Sender: FDA-Public Use
  Company Number: 20041200518

PATIENT
  Age: 61 Year
  Sex: Male
  Weight: 139 kg

DRUGS (9)
  1. PHENYTOIN [Suspect]
     Indication: CONVULSION PROPHYLAXIS
     Dosage: 2 G ONCE PO
     Route: 048
     Dates: start: 20041209, end: 20041209
  2. PHENYTOIN [Suspect]
     Indication: CONVULSION PROPHYLAXIS
     Dosage: 100 MG TID PO
     Route: 048
     Dates: start: 20041209, end: 20041201
  3. PHENYTOIN [Suspect]
     Indication: CONVULSION PROPHYLAXIS
     Dosage: 150 MG TID PO
     Route: 048
     Dates: start: 20041201, end: 20041211
  4. PHENYTOIN [Suspect]
     Indication: CONVULSION PROPHYLAXIS
     Route: 048
     Dates: start: 20041211, end: 20041213
  5. PHENYTOIN [Suspect]
     Indication: CONVULSION PROPHYLAXIS
     Dosage: OTHER BID IV
     Route: 042
     Dates: start: 20041213, end: 20041215
  6. PHENYTOIN [Suspect]
     Indication: CONVULSION PROPHYLAXIS
     Dosage: 500 MG BOLUS IV
     Route: 040
     Dates: start: 20041215, end: 20041215
  7. PHENYTOIN [Suspect]
     Indication: CONVULSION PROPHYLAXIS
     Dosage: 300 MG BID IV
     Route: 042
     Dates: start: 20041215, end: 20041216
  8. PHENYTOIN [Suspect]
     Indication: CONVULSION PROPHYLAXIS
     Dosage: 500 MG BOLUS IV
     Route: 040
     Dates: start: 20041216, end: 20041216
  9. PHENYTOIN [Suspect]
     Indication: CONVULSION PROPHYLAXIS
     Dosage: 400 MG BID IV
     Route: 042
     Dates: start: 20041216, end: 20041216

REACTIONS (3)
  - CONVULSION [None]
  - DRUG LEVEL BELOW THERAPEUTIC [None]
  - PHARMACEUTICAL PRODUCT COMPLAINT [None]
